FAERS Safety Report 8316460-X (Version None)
Quarter: 2012Q2

REPORT INFORMATION
  Report Type: 
  Country: None (occurrence: None)
  Receive Date: 20120425
  Receipt Date: 20120425
  Transmission Date: 20120825
  Serious: No
  Sender: FDA-Public Use
  Company Number: None

PATIENT
  Age: 59 Year
  Sex: Female
  Weight: 83.9154 kg

DRUGS (2)
  1. AMBIEN [Suspect]
     Indication: INSOMNIA
     Dosage: 10 MG 1 PER NITE TABLET  ABOUT 1 MO. 2010 OR 2009
  2. AMBIEN CR [Suspect]
     Dosage: 10 MG 1 PER NITE TABLET  ABOUT 1 MO. 2010 OR 2009

REACTIONS (1)
  - NEUROPATHY PERIPHERAL [None]
